FAERS Safety Report 9271660 (Version 2)
Quarter: 2014Q2

REPORT INFORMATION
  Report Type: Spontaneous
  Country: US (occurrence: US)
  Receive Date: 20130506
  Receipt Date: 20140428
  Transmission Date: 20141212
  Serious: No
  Sender: FDA-Public Use
  Company Number: US-COVIDIEN/TYCO HEALTHCARE/MALLINCKRODT-T201204643

PATIENT
  Age: 45 Year
  Sex: Female

DRUGS (5)
  1. HYDROCODONE/ACETAMINOPHEN [Suspect]
     Indication: PAIN
     Dosage: 10/650 MG  Q6 - 8 HOURS PRN
     Route: 048
  2. HYDROCODONE W/ACETAMINOPHEN [Concomitant]
     Indication: PAIN
     Dosage: 10/325 MG, UNK
  3. OMEPRAZOLE [Concomitant]
     Indication: GASTROOESOPHAGEAL REFLUX DISEASE
     Dosage: UNK
  4. RESTASIS [Concomitant]
     Indication: DRY EYE
     Dosage: UNK
  5. PENTOSAN POLYSULFATE [Concomitant]
     Indication: CYSTITIS INTERSTITIAL
     Dosage: UNK

REACTIONS (1)
  - Drug screen negative [Unknown]
